FAERS Safety Report 18567722 (Version 1)
Quarter: 2020Q4

REPORT INFORMATION
  Report Type: Other
  Country: CA (occurrence: CA)
  Receive Date: 20201202
  Receipt Date: 20201202
  Transmission Date: 20210114
  Serious: Yes (Hospitalization, Other)
  Sender: FDA-Public Use
  Company Number: CA-CELLTRION INC.-2020CA032695

PATIENT

DRUGS (27)
  1. PREGABALIN. [Concomitant]
     Active Substance: PREGABALIN
  2. VITAMIN C [Concomitant]
     Active Substance: ASCORBIC ACID
  3. RITUXIMAB (UNKNOWN) [Suspect]
     Active Substance: RITUXIMAB
     Indication: RHEUMATOID ARTHRITIS
     Dosage: 1000 MG, 1 EVERY 2 WEEKS
     Route: 042
  4. ACETAMINOPHEN. [Concomitant]
     Active Substance: ACETAMINOPHEN
     Indication: PREMEDICATION
     Dosage: 650 MG, 1 EVERY 2 WEEKS
     Route: 048
  5. DIPHENHYDRAMINE HYDROCHLORIDE. [Concomitant]
     Active Substance: DIPHENHYDRAMINE HYDROCHLORIDE
     Indication: PREMEDICATION
     Dosage: 50 G, 1 EVERY 2 WEEKS
     Route: 048
  6. FENTANYL. [Concomitant]
     Active Substance: FENTANYL
  7. METHYLPREDNISOLONE. [Concomitant]
     Active Substance: METHYLPREDNISOLONE
     Indication: PREMEDICATION
     Dosage: 100 MG
     Route: 042
  8. SENNOKOTT [Concomitant]
     Active Substance: SENNOSIDES A AND B
  9. TYLENOL [Concomitant]
     Active Substance: ACETAMINOPHEN
  10. AMLODIPINE [Concomitant]
     Active Substance: AMLODIPINE BESYLATE
  11. DICYCLOMINE [Concomitant]
     Active Substance: DICYCLOMINE HYDROCHLORIDE
  12. METHOTREXATE. [Concomitant]
     Active Substance: METHOTREXATE
  13. ROSUVASTATIN. [Concomitant]
     Active Substance: ROSUVASTATIN
  14. ACTEMRA [Suspect]
     Active Substance: TOCILIZUMAB
     Indication: RHEUMATOID ARTHRITIS
     Dosage: 162 MG, 1 EVERY 2 WEEKS
     Route: 058
  15. FOLIC ACID. [Concomitant]
     Active Substance: FOLIC ACID
     Indication: PREMEDICATION
     Dosage: 100 MG
     Route: 042
  16. MYRBETRIC [Concomitant]
     Active Substance: MIRABEGRON
  17. PREDNISONE. [Concomitant]
     Active Substance: PREDNISONE
  18. MILK THISTLE [SILYBUM MARIANUM] [Concomitant]
     Active Substance: DIETARY SUPPLEMENT\HERBALS\MILK THISTLE
  19. CIPRALEX [Concomitant]
     Active Substance: ESCITALOPRAM OXALATE
  20. HYDROMORPHONE [Concomitant]
     Active Substance: HYDROMORPHONE
  21. SULFASALAZINE. [Concomitant]
     Active Substance: SULFASALAZINE
  22. SYNTHROID [Concomitant]
     Active Substance: LEVOTHYROXINE SODIUM
  23. ACTEMRA [Suspect]
     Active Substance: TOCILIZUMAB
     Indication: RHEUMATOID ARTHRITIS
     Dosage: 162 MG, 2 EVERY 1 WEEKS
     Route: 058
  24. CANDESARTAN. [Concomitant]
     Active Substance: CANDESARTAN
  25. PANTOPRAZOLE [Concomitant]
     Active Substance: PANTOPRAZOLE
  26. OXYCODONE [Concomitant]
     Active Substance: OXYCODONE
  27. PERINDOPRIL [Concomitant]
     Active Substance: PERINDOPRIL

REACTIONS (10)
  - Pancreatitis chronic [Not Recovered/Not Resolved]
  - Urinary incontinence [Not Recovered/Not Resolved]
  - Blood pressure systolic increased [Not Recovered/Not Resolved]
  - Blood pressure diastolic abnormal [Not Recovered/Not Resolved]
  - Blood pressure increased [Not Recovered/Not Resolved]
  - Infusion related reaction [Not Recovered/Not Resolved]
  - Oxygen saturation decreased [Not Recovered/Not Resolved]
  - Rheumatoid arthritis [Not Recovered/Not Resolved]
  - Back pain [Not Recovered/Not Resolved]
  - Rash [Not Recovered/Not Resolved]
